FAERS Safety Report 13401711 (Version 1)
Quarter: 2017Q2

REPORT INFORMATION
  Report Type: Report from Study
  Country: BR (occurrence: BR)
  Receive Date: 20170404
  Receipt Date: 20170404
  Transmission Date: 20170830
  Serious: Yes (Hospitalization, Other)
  Sender: FDA-Public Use
  Company Number: BR-ALEXION PHARMACEUTICALS INC.-A201612300

PATIENT
  Age: 29 Year
  Sex: Female

DRUGS (10)
  1. ATENOLOL. [Concomitant]
     Active Substance: ATENOLOL
     Indication: HAEMOLYTIC URAEMIC SYNDROME
     Dosage: 25 MG, UNK
     Route: 065
     Dates: start: 20130412
  2. OMEPRAZOLE. [Concomitant]
     Active Substance: OMEPRAZOLE
     Indication: HAEMOLYTIC URAEMIC SYNDROME
     Dosage: 20 MG, UNK
     Route: 065
     Dates: start: 20130412
  3. SOLIRIS [Suspect]
     Active Substance: ECULIZUMAB
     Indication: HAEMOLYTIC URAEMIC SYNDROME
     Dosage: UNK
     Route: 065
     Dates: start: 20140204
  4. TACROLIMUS. [Concomitant]
     Active Substance: TACROLIMUS
     Indication: HAEMOLYTIC URAEMIC SYNDROME
     Dosage: 2 MG, UNK
     Route: 065
     Dates: start: 20130411
  5. EVEROLIMUS [Concomitant]
     Active Substance: EVEROLIMUS
     Indication: HAEMOLYTIC URAEMIC SYNDROME
     Dosage: 2 MG, BID
     Route: 065
     Dates: start: 20131212
  6. CIPROFLOXACIN. [Concomitant]
     Active Substance: CIPROFLOXACIN
     Indication: HAEMOLYTIC URAEMIC SYNDROME
     Dosage: UNK
     Route: 065
     Dates: start: 20140409
  7. CLAVULIN DUO [Concomitant]
     Active Substance: AMOXICILLIN\CLAVULANIC ACID
     Indication: HAEMOLYTIC URAEMIC SYNDROME
     Dosage: UNK
     Route: 065
     Dates: start: 20140204
  8. AMLODIPINE [Concomitant]
     Active Substance: AMLODIPINE BESYLATE
     Indication: HAEMOLYTIC URAEMIC SYNDROME
     Dosage: 25 MG, UNK
     Route: 065
     Dates: start: 20140211
  9. NITROFURANTOIN. [Concomitant]
     Active Substance: NITROFURANTOIN
     Indication: PROPHYLAXIS
     Dosage: 100 MG, UNK
     Route: 065
     Dates: start: 20140506
  10. PREDNISONE. [Concomitant]
     Active Substance: PREDNISONE
     Indication: HAEMOLYTIC URAEMIC SYNDROME
     Dosage: 5 MG, UNK
     Route: 065
     Dates: start: 20130412

REACTIONS (7)
  - Menstruation irregular [Unknown]
  - Pain in extremity [Unknown]
  - Dysuria [Unknown]
  - Bone infarction [Unknown]
  - Pruritus [Unknown]
  - Hip arthroplasty [Unknown]
  - Headache [Unknown]

NARRATIVE: CASE EVENT DATE: 20140429
